FAERS Safety Report 4604546-2 (Version None)
Quarter: 2005Q1

REPORT INFORMATION
  Report Type: 
  Country: None (occurrence: None)
  Receive Date: 20050310
  Receipt Date: 20030605
  Transmission Date: 20050727
  Serious: Yes (Hospitalization, Other)
  Sender: FDA-Public Use
  Company Number: US-MERCK-0306USA00655

PATIENT
  Age: 54 Year
  Sex: Female
  Weight: 65 kg

DRUGS (8)
  1. VIOXX [Suspect]
     Indication: BACK INJURY
     Route: 048
     Dates: start: 20010605
  2. AMARYL [Concomitant]
     Route: 048
  3. LIPITOR [Concomitant]
     Route: 065
  4. TOPROL-XL [Concomitant]
     Route: 048
  5. TYLENOL [Concomitant]
     Route: 065
  6. FLEXERIL [Concomitant]
     Route: 048
  7. DIAZEPAM [Concomitant]
     Route: 048
  8. PREVACID [Concomitant]
     Route: 048

REACTIONS (29)
  - ADVERSE EVENT [None]
  - AMNESIA [None]
  - ANGINA PECTORIS [None]
  - ANGLE CLOSURE GLAUCOMA [None]
  - ANXIETY [None]
  - ARTHROPATHY [None]
  - BACK PAIN [None]
  - BLOOD PRESSURE INCREASED [None]
  - CARTILAGE HYPERTROPHY [None]
  - CEREBROVASCULAR ACCIDENT [None]
  - CHEST PAIN [None]
  - CONVULSION [None]
  - CORONARY ARTERY DISEASE [None]
  - CORONARY ARTERY STENOSIS [None]
  - DEPRESSION [None]
  - DIZZINESS [None]
  - FAECES DISCOLOURED [None]
  - GAIT DISTURBANCE [None]
  - GASTRIC ULCER HAEMORRHAGE [None]
  - HEADACHE [None]
  - HYPERCHOLESTEROLAEMIA [None]
  - HYPERHIDROSIS [None]
  - HYPERTENSION [None]
  - INTERVERTEBRAL DISC DISORDER [None]
  - JOINT SPRAIN [None]
  - MEMORY IMPAIRMENT [None]
  - MYOCARDIAL INFARCTION [None]
  - NAUSEA [None]
  - POSTURE ABNORMAL [None]
